FAERS Safety Report 23490326 (Version 1)
Quarter: 2024Q1

REPORT INFORMATION
  Report Type: Spontaneous
  Country: US (occurrence: None)
  Receive Date: 20240206
  Receipt Date: 20240206
  Transmission Date: 20240409
  Serious: No
  Sender: FDA-Public Use
  Company Number: US-ROCHE-3468579

PATIENT
  Sex: Female

DRUGS (3)
  1. NUTROPIN AQ [Suspect]
     Active Substance: SOMATROPIN
     Indication: Short stature
     Dosage: DAILY, ONGOING- YES, 20MG/2ML
     Route: 058
     Dates: start: 202311
  2. NUTROPIN AQ [Suspect]
     Active Substance: SOMATROPIN
  3. NORDITROPIN [Concomitant]
     Active Substance: SOMATROPIN
     Route: 065

REACTIONS (2)
  - Intentional device misuse [Unknown]
  - No adverse event [Unknown]
